FAERS Safety Report 18532650 (Version 1)
Quarter: 2020Q4

REPORT INFORMATION
  Report Type: Report from Study
  Country: None (occurrence: CA)
  Receive Date: 20201123
  Receipt Date: 20201123
  Transmission Date: 20210114
  Serious: Yes (Other)
  Sender: FDA-Public Use
  Company Number: CA-ABBVIE-20K-028-3659153-00

PATIENT
  Sex: Male

DRUGS (1)
  1. HUMIRA [Suspect]
     Active Substance: ADALIMUMAB
     Indication: PSORIASIS
     Route: 058
     Dates: start: 20120107

REACTIONS (3)
  - Osteoarthritis [Not Recovered/Not Resolved]
  - Skin ulcer [Unknown]
  - Dermal cyst [Unknown]

NARRATIVE: CASE EVENT DATE: 2020
